FAERS Safety Report 17439087 (Version 1)
Quarter: 2020Q1

REPORT INFORMATION
  Report Type: Spontaneous
  Country: US (occurrence: US)
  Receive Date: 20200219
  Receipt Date: 20200219
  Transmission Date: 20200409
  Serious: No
  Sender: FDA-Public Use
  Company Number: None

PATIENT
  Age: 58 Year
  Sex: Female
  Weight: 103.5 kg

DRUGS (5)
  1. LOSARTAN 25 MG [Concomitant]
     Active Substance: LOSARTAN
     Dates: start: 20190227
  2. VENTOLIN HFA [Concomitant]
     Active Substance: ALBUTEROL SULFATE
     Dates: start: 20150218
  3. ADVAIR 500 [Concomitant]
     Dates: start: 20130219
  4. MONTELUKAST [Concomitant]
     Active Substance: MONTELUKAST SODIUM
     Dates: start: 20150218
  5. DUPIXENT [Suspect]
     Active Substance: DUPILUMAB
     Indication: ASTHMA
     Dosage: ?          OTHER FREQUENCY:Q2WEEKS;?
     Route: 058
     Dates: start: 20191127, end: 20191127

REACTIONS (7)
  - Movement disorder [None]
  - Arthralgia [None]
  - Myalgia [None]
  - Eye pain [None]
  - Lichen planus [None]
  - Rheumatoid factor increased [None]
  - Vision blurred [None]

NARRATIVE: CASE EVENT DATE: 20191129
